FAERS Safety Report 7178056-5 (Version None)
Quarter: 2010Q4

REPORT INFORMATION
  Report Type: 
  Country: None (occurrence: None)
  Receive Date: 20101220
  Receipt Date: 20101209
  Transmission Date: 20110411
  Serious: Yes (Death, Hospitalization)
  Sender: FDA-Public Use
  Company Number: A0725418A

PATIENT
  Age: 45 Year
  Sex: Male
  Weight: 109.1 kg

DRUGS (7)
  1. AVANDIA [Suspect]
     Dosage: 2MG TWICE PER DAY
     Route: 048
     Dates: start: 20050422, end: 20070101
  2. AVANDAMET [Suspect]
     Route: 065
     Dates: start: 20041217, end: 20050303
  3. DIOVAN [Concomitant]
  4. ZOCOR [Concomitant]
  5. GLIPIZIDE [Concomitant]
  6. METFORMIN HCL [Concomitant]
  7. ACTOS [Concomitant]

REACTIONS (1)
  - MYOCARDIAL INFARCTION [None]
